FAERS Safety Report 7405130-8 (Version None)
Quarter: 2011Q2

REPORT INFORMATION
  Report Type: 
  Country: None (occurrence: None)
  Receive Date: 20110404
  Receipt Date: 20110325
  Transmission Date: 20111010
  Serious: Yes (Hospitalization, Disabling, Other)
  Sender: FDA-Public Use
  Company Number: 2010SP040550

PATIENT
  Age: 36 Year
  Sex: Female
  Weight: 86.1834 kg

DRUGS (5)
  1. LEXAPRO [Suspect]
     Indication: ANXIETY
  2. NUVARING [Suspect]
     Indication: CONTRACEPTION
     Dates: start: 20070810, end: 20080814
  3. DILANTIN [Suspect]
     Indication: CONVULSION
  4. ADVIL LIQUI-GELS [Concomitant]
  5. MARIJUANA [Concomitant]

REACTIONS (38)
  - AMBLYOPIA [None]
  - BRAIN MIDLINE SHIFT [None]
  - BRAIN OEDEMA [None]
  - PAROSMIA [None]
  - NIGHT SWEATS [None]
  - PREGNANCY TEST POSITIVE [None]
  - DISORIENTATION [None]
  - TINNITUS [None]
  - CONVULSION [None]
  - MENSTRUATION IRREGULAR [None]
  - NECK PAIN [None]
  - INTRACRANIAL VENOUS SINUS THROMBOSIS [None]
  - HORMONE LEVEL ABNORMAL [None]
  - RASH [None]
  - HYPERHIDROSIS [None]
  - TRANSVERSE SINUS THROMBOSIS [None]
  - OLIGOMENORRHOEA [None]
  - VITAMIN D DECREASED [None]
  - BLOOD IRON DECREASED [None]
  - VERTIGO [None]
  - TOXICITY TO VARIOUS AGENTS [None]
  - DEPRESSION [None]
  - CEREBRAL HAEMORRHAGE [None]
  - ACTIVITIES OF DAILY LIVING IMPAIRED [None]
  - AMNESIA [None]
  - ANXIETY [None]
  - HYPERCOAGULATION [None]
  - VISUAL IMPAIRMENT [None]
  - BRUXISM [None]
  - DYSMENORRHOEA [None]
  - GALLBLADDER DISORDER [None]
  - HOT FLUSH [None]
  - CAROTID ARTERY THROMBOSIS [None]
  - POST-TRAUMATIC STRESS DISORDER [None]
  - FATIGUE [None]
  - CHOLECYSTITIS [None]
  - CHOLELITHIASIS [None]
  - ENCEPHALOMALACIA [None]
